FAERS Safety Report 5603925-4 (Version None)
Quarter: 2008Q1

REPORT INFORMATION
  Report Type: 
  Country: None (occurrence: None)
  Receive Date: 20080128
  Receipt Date: 20080114
  Transmission Date: 20080703
  Serious: Yes (Hospitalization)
  Sender: FDA-Public Use
  Company Number: US-BAYER-200811243NA

PATIENT
  Age: 70 Year
  Sex: Male
  Weight: 72 kg

DRUGS (7)
  1. NEXAVAR [Suspect]
     Indication: HEPATIC NEOPLASM MALIGNANT
     Route: 048
     Dates: start: 20070921, end: 20071022
  2. COUMADIN [Concomitant]
     Indication: ATRIAL FIBRILLATION
     Dosage: TOTAL DAILY DOSE: 6 MG
     Dates: start: 20070414, end: 20071113
  3. NEXIUM [Concomitant]
     Route: 048
  4. LANOXIN [Concomitant]
     Dosage: TOTAL DAILY DOSE: 0.125 MG
  5. ASPIRIN [Concomitant]
     Dosage: TOTAL DAILY DOSE: 325 MG
     Route: 048
  6. METOPROLOL TARTRATE [Concomitant]
     Dosage: TOTAL DAILY DOSE: 200 MG
     Route: 048
  7. LASIX [Concomitant]
     Dosage: TOTAL DAILY DOSE: 40 MG
     Route: 048

REACTIONS (4)
  - HAEMORRHAGE [None]
  - INTERNATIONAL NORMALISED RATIO INCREASED [None]
  - MUSCLE TIGHTNESS [None]
  - PAIN IN EXTREMITY [None]
